FAERS Safety Report 14246667 (Version 1)
Quarter: 2017Q4

REPORT INFORMATION
  Report Type: Spontaneous
  Country: US (occurrence: US)
  Receive Date: 20171204
  Receipt Date: 20171204
  Transmission Date: 20180321
  Serious: No
  Sender: FDA-Public Use
  Company Number: US-PFIZER INC-2017512481

PATIENT
  Age: 56 Year
  Sex: Female
  Weight: 65.76 kg

DRUGS (7)
  1. PRISTIQ EXTENDED-RELEASE [Suspect]
     Active Substance: DESVENLAFAXINE SUCCINATE
     Indication: DEPRESSION
     Dosage: 100 MG, 1X/DAY (EACH MORNING)
     Route: 048
     Dates: start: 20171005
  2. OXCARBAZEPINE. [Concomitant]
     Active Substance: OXCARBAZEPINE
     Indication: AFFECTIVE DISORDER
     Dosage: 300 MG, 3X/DAY
     Route: 048
     Dates: start: 20171005
  3. OXCARBAZEPINE. [Concomitant]
     Active Substance: OXCARBAZEPINE
     Dosage: 600 MG, 2X/DAY
     Route: 048
     Dates: start: 20171104
  4. CLONIDINE HCL [Concomitant]
     Active Substance: CLONIDINE HYDROCHLORIDE
     Indication: ANXIETY
     Dosage: 0.2 MG, 3X/DAY
     Route: 048
     Dates: start: 20171005
  5. SEROQUEL [Concomitant]
     Active Substance: QUETIAPINE FUMARATE
     Indication: AFFECTIVE DISORDER
     Dosage: 400 MG, 1X/ DAY (EACH NIGHT)
     Route: 048
     Dates: start: 20171005
  6. HYDROXYZINE PAMOATE. [Concomitant]
     Active Substance: HYDROXYZINE PAMOATE
     Indication: ANXIETY
     Dosage: 50 MG, AS NEEDED (UP TO 4 TIMES DAILY AS NEEDED)
     Route: 048
     Dates: start: 20171005
  7. SEROQUEL [Concomitant]
     Active Substance: QUETIAPINE FUMARATE
     Indication: BIPOLAR DISORDER
     Dosage: 200 MG, 1X/DAY (EACH NIGHT AT BEDTIME)
     Route: 048
     Dates: start: 20171104

REACTIONS (11)
  - Mood swings [Unknown]
  - Irritability [Unknown]
  - Depression [Unknown]
  - Disturbance in attention [Unknown]
  - Asthenia [Unknown]
  - Panic attack [Unknown]
  - Decreased appetite [Unknown]
  - Weight decreased [Unknown]
  - Anxiety [Unknown]
  - Depressed mood [Unknown]
  - Blunted affect [Unknown]

NARRATIVE: CASE EVENT DATE: 2017
